FAERS Safety Report 10247971 (Version 1)
Quarter: 2014Q2

REPORT INFORMATION
  Report Type: Spontaneous
  Country: CA (occurrence: CA)
  Receive Date: 20140619
  Receipt Date: 20140619
  Transmission Date: 20141212
  Serious: Yes (Life-Threatening, Hospitalization)
  Sender: FDA-Public Use
  Company Number: CA-TAKEDA-2014MPI001681

PATIENT
  Sex: 0

DRUGS (6)
  1. VELCADE [Suspect]
     Indication: PLASMA CELL MYELOMA
     Dosage: UNK UNK, 2/WEEK
     Route: 042
  2. VELCADE [Suspect]
     Dosage: UNK, 1/WEEK
  3. MELPHALAN [Suspect]
     Indication: PLASMA CELL MYELOMA
     Dosage: UNK UNK, 2/WEEK
     Route: 065
  4. MELPHALAN [Suspect]
     Dosage: UNK, 1/WEEK
  5. PREDNISONE [Suspect]
     Dosage: UNK UNK, 2/WEEK
     Route: 065
  6. PREDNISONE [Suspect]
     Dosage: UNK, 1/WEEK

REACTIONS (1)
  - Posterior reversible encephalopathy syndrome [Recovered/Resolved]
